FAERS Safety Report 6178626-7 (Version None)
Quarter: 2009Q2

REPORT INFORMATION
  Report Type: 
  Country: None (occurrence: None)
  Receive Date: 20090504
  Receipt Date: 20080919
  Transmission Date: 20091009
  Serious: No
  Sender: FDA-Public Use
  Company Number: US-ALEXION-A200800229

PATIENT
  Sex: Female

DRUGS (8)
  1. SOLIRIS [Suspect]
     Indication: PAROXYSMAL NOCTURNAL HAEMOGLOBINURIA
     Dosage: 600 MG, UNK
     Route: 042
     Dates: start: 20080603, end: 20080624
  2. SOLIRIS [Suspect]
     Dosage: 900 MG, EVERY 2 WEEKS
     Route: 042
     Dates: start: 20080703, end: 20080801
  3. SOLIRIS [Suspect]
     Dosage: 900 MG, EVERY 2 WEEKS
     Route: 042
     Dates: start: 20080801
  4. EXJADE [Concomitant]
  5. DANAZOL [Concomitant]
     Dosage: 200 MG, BID
  6. FOLIC ACID [Concomitant]
  7. ACTONEL [Concomitant]
     Indication: BONE DENSITY DECREASED
     Dosage: 35 MG, 1 TIME WEEKLY
     Route: 048
  8. ATACAND [Concomitant]
     Indication: BLOOD PRESSURE
     Dosage: 16 MG, QD
     Route: 048

REACTIONS (4)
  - FLUSHING [None]
  - RASH [None]
  - ROSACEA [None]
  - SWELLING FACE [None]
